FAERS Safety Report 9717248 (Version 1)
Quarter: 2013Q4

REPORT INFORMATION
  Report Type: Spontaneous
  Country: FR (occurrence: FR)
  Receive Date: 20131127
  Receipt Date: 20131127
  Transmission Date: 20140711
  Serious: Yes (Hospitalization, Other)
  Sender: FDA-Public Use
  Company Number: FR-PFIZER INC-2013332238

PATIENT
  Age: 86 Year
  Sex: Female

DRUGS (7)
  1. ACUILIX [Suspect]
     Indication: HYPERTENSION
     Dosage: 1 DF, 1X/DAY
     Route: 048
     Dates: end: 20130923
  2. ATENOLOL [Concomitant]
     Dosage: UNK
  3. LIPANTHYL [Concomitant]
     Dosage: UNK
  4. ALLOPURINOL [Concomitant]
     Dosage: UNK
  5. SULPIRIDE [Concomitant]
     Dosage: UNK
  6. DIAZEPAM [Concomitant]
     Dosage: UNK
  7. CATAPRESSAN [Concomitant]
     Dosage: UNK

REACTIONS (5)
  - Hyponatraemia [Recovered/Resolved]
  - Hypochloraemia [Recovered/Resolved]
  - Cardiac failure [Unknown]
  - Infection [Unknown]
  - Erysipelas [Unknown]
